FAERS Safety Report 4688734-5 (Version None)
Quarter: 2005Q2

REPORT INFORMATION
  Report Type: 
  Country: None (occurrence: None)
  Receive Date: 20050608
  Receipt Date: 20050301
  Transmission Date: 20051028
  Serious: No
  Sender: FDA-Public Use
  Company Number: 2004-BP-11978BP

PATIENT
  Age: 76 Year
  Sex: Male
  Weight: 62 kg

DRUGS (12)
  1. SPIRIVA [Suspect]
     Indication: CHRONIC OBSTRUCTIVE PULMONARY DISEASE
     Dosage: 18 MCG (18 MCG, 1 IN 1 D), IH
     Route: 055
     Dates: start: 20041005, end: 20041116
  2. SPIRIVA [Suspect]
     Indication: EMPHYSEMA
     Dosage: 18 MCG (18 MCG, 1 IN 1 D), IH
     Route: 055
     Dates: start: 20041005, end: 20041116
  3. SPIRIVA [Suspect]
     Indication: CHRONIC OBSTRUCTIVE PULMONARY DISEASE
     Dosage: 18 MCG (18 MCG, 1 IN 1 D), IH
     Route: 055
     Dates: start: 20041005, end: 20041116
  4. SPIRIVA [Suspect]
     Indication: EMPHYSEMA
     Dosage: 18 MCG (18 MCG, 1 IN 1 D), IH
     Route: 055
     Dates: start: 20041005, end: 20041116
  5. PREDNISONE [Concomitant]
  6. ALBUTEROL [Concomitant]
  7. LIPITOR [Concomitant]
  8. ACETYLSALICYLIC ACID SRT [Concomitant]
  9. LASIX [Concomitant]
  10. LORAZEPAM [Concomitant]
  11. TRIAM/HCTZ (DYAZIDE) [Concomitant]
  12. MAVIK [Concomitant]

REACTIONS (2)
  - CHEST PAIN [None]
  - PAIN IN EXTREMITY [None]
